FAERS Safety Report 14402657 (Version 1)
Quarter: 2018Q1

REPORT INFORMATION
  Report Type: Spontaneous
  Country: US (occurrence: US)
  Receive Date: 20180117
  Receipt Date: 20180117
  Transmission Date: 20180509
  Serious: No
  Sender: FDA-Public Use
  Company Number: US-NOVOPROD-571476

PATIENT
  Age: 54 Year
  Sex: Female

DRUGS (1)
  1. SAXENDA [Suspect]
     Active Substance: LIRAGLUTIDE
     Indication: WEIGHT DECREASED
     Dosage: 1.8 MG PLUS 1.2 MG DAILY
     Route: 058
     Dates: start: 201507

REACTIONS (5)
  - Nausea [Recovered/Resolved]
  - Product use issue [Unknown]
  - Product storage error [Unknown]
  - Drug dose omission [Recovered/Resolved]
  - Ear pain [Unknown]

NARRATIVE: CASE EVENT DATE: 201710
